FAERS Safety Report 18185957 (Version 2)
Quarter: 2020Q3

REPORT INFORMATION
  Report Type: Spontaneous
  Country: US (occurrence: US)
  Receive Date: 20200824
  Receipt Date: 20200824
  Transmission Date: 20201103
  Serious: Yes (Other)
  Sender: FDA-Public Use
  Company Number: US-ALLERGAN-2031706US

PATIENT
  Sex: Male

DRUGS (5)
  1. TRIAMCINOLONE [Suspect]
     Active Substance: TRIAMCINOLONE
     Indication: VOGT-KOYANAGI-HARADA DISEASE
  2. ADALIMUMAB [Suspect]
     Active Substance: ADALIMUMAB
     Indication: VOGT-KOYANAGI-HARADA DISEASE
     Route: 058
  3. PREDNISOLONE UNK [Suspect]
     Active Substance: PREDNISOLONE
     Indication: VOGT-KOYANAGI-HARADA DISEASE
     Dosage: UNK GTT, TID
  4. PREDNISONE. [Suspect]
     Active Substance: PREDNISONE
     Indication: VOGT-KOYANAGI-HARADA DISEASE
     Dosage: 25 MG, QD
  5. MYCOPHENOLATE MOFETIL. [Suspect]
     Active Substance: MYCOPHENOLATE MOFETIL
     Indication: VOGT-KOYANAGI-HARADA DISEASE
     Dosage: 500 MG, BID

REACTIONS (8)
  - Eye inflammation [Recovered/Resolved]
  - Cataract [Unknown]
  - Osteonecrosis [Unknown]
  - Insomnia [Unknown]
  - Eye pain [Recovering/Resolving]
  - Drug ineffective [Unknown]
  - Cystoid macular oedema [Recovered/Resolved]
  - Visual impairment [Recovering/Resolving]
